FAERS Safety Report 7530023-5 (Version None)
Quarter: 2011Q2

REPORT INFORMATION
  Report Type: 
  Country: None (occurrence: None)
  Receive Date: 20110607
  Receipt Date: 20110524
  Transmission Date: 20111010
  Serious: Yes (Other)
  Sender: FDA-Public Use
  Company Number: PHHY2011US45236

PATIENT
  Sex: Female

DRUGS (2)
  1. RECLAST [Suspect]
     Indication: OSTEOPOROSIS
     Dosage: 5 MG, YEARLY
     Route: 042
     Dates: start: 20110209
  2. AMLODIPINE [Concomitant]
     Dosage: 10 MG, UNK

REACTIONS (5)
  - BLOOD CREATININE INCREASED [None]
  - WEIGHT INCREASED [None]
  - OEDEMA [None]
  - URINARY TRACT INFECTION [None]
  - BLOOD UREA INCREASED [None]
